FAERS Safety Report 5188081-1 (Version None)
Quarter: 2006Q4

REPORT INFORMATION
  Report Type: 
  Country: None (occurrence: None)
  Receive Date: 20061221
  Receipt Date: 20061106
  Transmission Date: 20070319
  Serious: Yes (Hospitalization)
  Sender: FDA-Public Use
  Company Number: 2006AP05335

PATIENT
  Age: 23602 Day
  Sex: Male
  Weight: 78 kg

DRUGS (30)
  1. DIPRIVAN [Suspect]
     Indication: INDUCTION AND MAINTENANCE OF ANAESTHESIA
     Dosage: 2.5-3.0 UG/ML
     Route: 042
     Dates: start: 20061025, end: 20061025
  2. ALTAT [Concomitant]
     Route: 048
     Dates: start: 20061025, end: 20061025
  3. RHYTHMY [Concomitant]
     Route: 048
     Dates: start: 20061025, end: 20061025
  4. FENTANEST [Concomitant]
     Indication: INDUCTION AND MAINTENANCE OF ANAESTHESIA
     Route: 042
     Dates: start: 20061025, end: 20061025
  5. FENTANEST [Concomitant]
     Indication: ANALGESIC EFFECT
     Route: 042
     Dates: start: 20061025, end: 20061025
  6. MUSCULAX [Concomitant]
     Indication: HYPOTONIA
     Route: 042
     Dates: start: 20061025, end: 20061025
  7. MARCAINE [Concomitant]
     Indication: LOCAL ANAESTHESIA
     Dates: start: 20061025, end: 20061025
  8. HALOSPOR [Concomitant]
     Indication: INFECTION PROPHYLAXIS
     Dates: start: 20061025, end: 20061025
  9. HALOSPOR [Concomitant]
     Route: 042
     Dates: start: 20061025, end: 20061025
  10. HALOSPOR [Concomitant]
     Route: 041
     Dates: start: 20061025, end: 20061029
  11. DECADRON [Concomitant]
     Indication: PROPHYLAXIS
     Route: 008
     Dates: start: 20061025, end: 20061025
  12. LEPETAN [Concomitant]
     Indication: POSTOPERATIVE ANALGESIA
     Route: 008
     Dates: start: 20061025, end: 20061025
  13. VOLTAREN [Concomitant]
     Indication: POSTOPERATIVE ANALGESIA
     Route: 054
     Dates: start: 20061025, end: 20061025
  14. VEEN-F [Concomitant]
     Dates: start: 20061025, end: 20061025
  15. SEISHOKU [Concomitant]
     Dates: start: 20061025, end: 20061025
  16. LORCAM [Concomitant]
     Indication: ANALGESIC EFFECT
     Route: 048
     Dates: start: 20061005, end: 20061025
  17. NICHOLASE [Concomitant]
     Indication: ANALGESIC EFFECT
     Route: 048
     Dates: start: 20061005, end: 20061025
  18. CYANOCOBALAMIN [Concomitant]
     Indication: ANALGESIC EFFECT
     Route: 048
     Dates: start: 20061005, end: 20061025
  19. SOLON [Concomitant]
     Indication: ANALGESIC EFFECT
     Route: 048
     Dates: start: 20061005, end: 20061025
  20. HALCION [Concomitant]
     Indication: INSOMNIA
     Route: 048
     Dates: start: 20061005, end: 20061025
  21. HALCION [Concomitant]
     Route: 048
     Dates: start: 20061005, end: 20061025
  22. HALCION [Concomitant]
     Route: 048
     Dates: start: 20061026, end: 20061117
  23. HALCION [Concomitant]
     Route: 048
     Dates: start: 20061026, end: 20061117
  24. LAMISIL [Concomitant]
     Indication: TINEA PEDIS
     Route: 048
     Dates: start: 20061005, end: 20061025
  25. LENDORMIN [Concomitant]
     Route: 048
     Dates: start: 20061024, end: 20061024
  26. KETALAR [Concomitant]
     Indication: INDUCTION OF ANAESTHESIA
     Route: 042
     Dates: start: 20061025, end: 20061025
  27. KETALAR [Concomitant]
     Indication: ANALGESIC EFFECT
     Route: 042
     Dates: start: 20061025, end: 20061025
  28. BISOLVON [Concomitant]
     Indication: SPUTUM RETENTION
     Route: 042
     Dates: start: 20061025
  29. BIO-THREE [Concomitant]
     Indication: ABDOMINAL DISTENSION
     Route: 048
     Dates: start: 20061101, end: 20061104
  30. GRISETIN V [Concomitant]
     Indication: FUNGAL INFECTION
     Route: 048
     Dates: start: 20061005, end: 20061025

REACTIONS (4)
  - CHOLESTASIS [None]
  - CONDITION AGGRAVATED [None]
  - HEPATOCELLULAR DAMAGE [None]
  - LIVER DISORDER [None]
